FAERS Safety Report 23052328 (Version 2)
Quarter: 2024Q1

REPORT INFORMATION
  Report Type: Spontaneous
  Country: PL (occurrence: PL)
  Receive Date: 20231010
  Receipt Date: 20240125
  Transmission Date: 20240410
  Serious: Yes (Death, Other)
  Sender: FDA-Public Use
  Company Number: PL-SANDOZ-SDZ2023PL033384

PATIENT
  Age: 49 Year
  Sex: Male

DRUGS (64)
  1. DOXORUBICIN [Suspect]
     Active Substance: DOXORUBICIN
     Indication: Diffuse large B-cell lymphoma
     Dosage: UNK, 6TH CYCLE
     Route: 065
     Dates: start: 20210406, end: 20210407
  2. DOXORUBICIN [Suspect]
     Active Substance: DOXORUBICIN
     Dosage: UNK, 5TH CYCLE
     Route: 065
     Dates: start: 20210315, end: 20210316
  3. DOXORUBICIN [Suspect]
     Active Substance: DOXORUBICIN
     Dosage: UNK, 2ND CYCLE
     Route: 065
     Dates: start: 20210105, end: 20210106
  4. DOXORUBICIN [Suspect]
     Active Substance: DOXORUBICIN
     Dosage: UNK, 3RD CYCLE
     Route: 065
     Dates: start: 20210129, end: 20210130
  5. DOXORUBICIN [Suspect]
     Active Substance: DOXORUBICIN
     Dosage: UNK, 1ST CYCLE
     Route: 065
     Dates: start: 20201215, end: 20201218
  6. DOXORUBICIN [Suspect]
     Active Substance: DOXORUBICIN
     Dosage: UNK, 8TH CYCLE
     Route: 065
     Dates: start: 20210520, end: 20210521
  7. DOXORUBICIN [Suspect]
     Active Substance: DOXORUBICIN
     Dosage: UNK, 7TH CYCLE
     Route: 065
     Dates: start: 20210429
  8. DOXORUBICIN [Suspect]
     Active Substance: DOXORUBICIN
     Dosage: UNK, 4TH CYCLE
     Route: 065
     Dates: start: 20210219, end: 20210220
  9. CYCLOPHOSPHAMIDE [Suspect]
     Active Substance: CYCLOPHOSPHAMIDE
     Indication: Diffuse large B-cell lymphoma
     Dosage: UNK, 5TH CYCLE
     Route: 065
     Dates: start: 20210315, end: 20210316
  10. CYCLOPHOSPHAMIDE [Suspect]
     Active Substance: CYCLOPHOSPHAMIDE
     Dosage: UNK, 3RD CYCLE
     Route: 065
     Dates: start: 20210129, end: 20210130
  11. CYCLOPHOSPHAMIDE [Suspect]
     Active Substance: CYCLOPHOSPHAMIDE
     Dosage: UNK, 2ND CYCLE
     Route: 065
     Dates: start: 20210105, end: 20210106
  12. CYCLOPHOSPHAMIDE [Suspect]
     Active Substance: CYCLOPHOSPHAMIDE
     Dosage: UNK, 7TH CYCLE
     Route: 065
     Dates: start: 20210429
  13. CYCLOPHOSPHAMIDE [Suspect]
     Active Substance: CYCLOPHOSPHAMIDE
     Dosage: UNK, 6TH CYCLE
     Route: 065
     Dates: start: 20210406, end: 20210407
  14. CYCLOPHOSPHAMIDE [Suspect]
     Active Substance: CYCLOPHOSPHAMIDE
     Dosage: UNK, 4TH CYCLE
     Route: 065
     Dates: start: 20210219, end: 20210220
  15. CYCLOPHOSPHAMIDE [Suspect]
     Active Substance: CYCLOPHOSPHAMIDE
     Dosage: UNK, 1ST CYCLE
     Route: 065
     Dates: start: 20201215, end: 20201218
  16. CYCLOPHOSPHAMIDE [Suspect]
     Active Substance: CYCLOPHOSPHAMIDE
     Dosage: UNK, 8TH CYCLE
     Route: 065
     Dates: start: 20210520, end: 20210521
  17. POLATUZUMAB VEDOTIN [Suspect]
     Active Substance: POLATUZUMAB VEDOTIN
     Indication: Diffuse large B-cell lymphoma
     Dosage: UNK
     Route: 065
  18. RITUXIMAB [Suspect]
     Active Substance: RITUXIMAB
     Indication: Diffuse large B-cell lymphoma
     Dosage: UNK, 5TH CYCLE, CONCENTRATE FOR SOLUTION FOR INFUSION
     Route: 065
     Dates: start: 20210315, end: 20210316
  19. RITUXIMAB [Suspect]
     Active Substance: RITUXIMAB
     Dosage: UNK, CONCENTRATE FOR SOLUTION FOR INFUSION
     Route: 065
     Dates: start: 20220607, end: 20220609
  20. RITUXIMAB [Suspect]
     Active Substance: RITUXIMAB
     Dosage: UNK, 2ND CYCLE, CONCENTRATE FOR SOLUTION FOR INFUSION
     Route: 065
     Dates: start: 20210105, end: 20210106
  21. RITUXIMAB [Suspect]
     Active Substance: RITUXIMAB
     Dosage: UNK, CONCENTRATE FOR SOLUTION FOR INFUSION
     Route: 065
     Dates: start: 20220702, end: 20220704
  22. RITUXIMAB [Suspect]
     Active Substance: RITUXIMAB
     Dosage: UNK, 7TH CYCLE, CONCENTRATE FOR SOLUTION FOR INFUSION
     Route: 065
     Dates: start: 20210429
  23. RITUXIMAB [Suspect]
     Active Substance: RITUXIMAB
     Dosage: UNK, CONCENTRATE FOR SOLUTION FOR INFUSION
     Route: 065
     Dates: start: 20220916, end: 20220918
  24. RITUXIMAB [Suspect]
     Active Substance: RITUXIMAB
     Dosage: UNK, CONCENTRATE FOR SOLUTION FOR INFUSION
     Route: 065
     Dates: start: 20221127, end: 20221129
  25. RITUXIMAB [Suspect]
     Active Substance: RITUXIMAB
     Dosage: UNK, 3RD CYCLE, CONCENTRATE FOR SOLUTION FOR INFUSION
     Route: 065
     Dates: start: 20210129, end: 20210130
  26. RITUXIMAB [Suspect]
     Active Substance: RITUXIMAB
     Dosage: UNK, CONCENTRATE FOR SOLUTION FOR INFUSION
     Route: 065
     Dates: start: 20221007, end: 20221008
  27. RITUXIMAB [Suspect]
     Active Substance: RITUXIMAB
     Dosage: UNK, 4TH CYCLE, CONCENTRATE FOR SOLUTION FOR INFUSION
     Route: 065
     Dates: start: 20210219, end: 20210220
  28. RITUXIMAB [Suspect]
     Active Substance: RITUXIMAB
     Dosage: UNK, 8TH CYCLE, CONCENTRATE FOR SOLUTION FOR INFUSION
     Route: 065
     Dates: start: 20210520, end: 20210521
  29. RITUXIMAB [Suspect]
     Active Substance: RITUXIMAB
     Dosage: UNK, 6TH CYCLE, CONCENTRATE FOR SOLUTION FOR INFUSION
     Route: 065
     Dates: start: 20210406, end: 20210407
  30. RITUXIMAB [Suspect]
     Active Substance: RITUXIMAB
     Dosage: UNK, 1ST CYCLE, CONCENTRATE FOR SOLUTION FOR INFUSION
     Route: 065
     Dates: start: 20201215, end: 20201218
  31. CYTARABINE [Suspect]
     Active Substance: CYTARABINE
     Indication: Diffuse large B-cell lymphoma
     Dosage: UNK
     Route: 065
     Dates: start: 20220702, end: 20220704
  32. CYTARABINE [Suspect]
     Active Substance: CYTARABINE
     Dosage: UNK
     Route: 065
     Dates: start: 20220607, end: 20220609
  33. CISPLATIN [Suspect]
     Active Substance: CISPLATIN
     Indication: Diffuse large B-cell lymphoma
     Dosage: UNK
     Route: 065
     Dates: start: 20220702, end: 20220704
  34. CISPLATIN [Suspect]
     Active Substance: CISPLATIN
     Dosage: UNK
     Route: 065
     Dates: start: 20220607, end: 20220609
  35. BENDAMUSTINE [Suspect]
     Active Substance: BENDAMUSTINE
     Indication: Diffuse large B-cell lymphoma
     Dosage: UNK
     Route: 065
     Dates: start: 20220916, end: 20220918
  36. BENDAMUSTINE [Suspect]
     Active Substance: BENDAMUSTINE
     Dosage: UNK
     Route: 065
     Dates: start: 20221127, end: 20221128
  37. BENDAMUSTINE [Suspect]
     Active Substance: BENDAMUSTINE
     Dosage: UNK
     Route: 065
     Dates: start: 20221007, end: 20221008
  38. DEXAMETHASONE [Suspect]
     Active Substance: DEXAMETHASONE
     Indication: Diffuse large B-cell lymphoma
     Dosage: UNK
     Route: 065
     Dates: start: 20220702, end: 20220704
  39. DEXAMETHASONE [Suspect]
     Active Substance: DEXAMETHASONE
     Dosage: UNK
     Route: 065
     Dates: start: 20220607, end: 20220609
  40. PREDNISONE [Suspect]
     Active Substance: PREDNISONE
     Indication: Diffuse large B-cell lymphoma
     Dosage: UNK, 3RD CYCLE
     Route: 065
     Dates: start: 20210129, end: 20210130
  41. PREDNISONE [Suspect]
     Active Substance: PREDNISONE
     Dosage: UNK, 4TH CYCLE
     Route: 065
     Dates: start: 20210219, end: 20210220
  42. PREDNISONE [Suspect]
     Active Substance: PREDNISONE
     Dosage: UNK, 2ND CYCLE
     Route: 065
     Dates: start: 20210105, end: 20210106
  43. PREDNISONE [Suspect]
     Active Substance: PREDNISONE
     Dosage: UNK, 7TH CYCLE
     Route: 065
     Dates: start: 20210429
  44. PREDNISONE [Suspect]
     Active Substance: PREDNISONE
     Dosage: UNK, 5TH CYCLE
     Route: 065
     Dates: start: 20210315, end: 20210316
  45. PREDNISONE [Suspect]
     Active Substance: PREDNISONE
     Dosage: UNK, 1ST CYCLE
     Route: 065
     Dates: start: 20201215, end: 20201218
  46. PREDNISONE [Suspect]
     Active Substance: PREDNISONE
     Dosage: UNK, 6TH CYCLE
     Route: 065
     Dates: start: 20210406, end: 20210407
  47. PREDNISONE [Suspect]
     Active Substance: PREDNISONE
     Dosage: UNK, 8TH CYCLE
     Route: 065
     Dates: start: 20210520, end: 20210521
  48. METHOTREXATE [Suspect]
     Active Substance: METHOTREXATE
     Indication: Diffuse large B-cell lymphoma
     Dosage: UNK, 5TH CYCLE
     Route: 065
     Dates: start: 20210315, end: 20210316
  49. METHOTREXATE [Suspect]
     Active Substance: METHOTREXATE
     Dosage: UNK, 3RD CYCLE
     Route: 065
     Dates: start: 20210129, end: 20210130
  50. METHOTREXATE [Suspect]
     Active Substance: METHOTREXATE
     Dosage: UNK, 2ND CYCLE
     Route: 065
     Dates: start: 20210105, end: 20210106
  51. METHOTREXATE [Suspect]
     Active Substance: METHOTREXATE
     Dosage: UNK, 4TH CYCLE
     Route: 065
     Dates: start: 20210219, end: 20210220
  52. METHOTREXATE [Suspect]
     Active Substance: METHOTREXATE
     Dosage: UNK, 6TH CYCLE
     Route: 065
     Dates: start: 20210406, end: 20210407
  53. METHOTREXATE [Suspect]
     Active Substance: METHOTREXATE
     Dosage: UNK, 1ST CYCLE
     Route: 065
     Dates: start: 20201215, end: 20201218
  54. METHOTREXATE [Suspect]
     Active Substance: METHOTREXATE
     Dosage: UNK, 7TH CYCLE
     Route: 065
     Dates: start: 20210429
  55. METHOTREXATE [Suspect]
     Active Substance: METHOTREXATE
     Dosage: UNK, 8TH CYCLE
     Route: 065
     Dates: start: 20210520, end: 20210521
  56. KYMRIAH [Suspect]
     Active Substance: TISAGENLECLEUCEL
     Indication: Diffuse large B-cell lymphoma
     Dosage: UNK
     Route: 065
     Dates: start: 20221207
  57. VINCRISTINE [Suspect]
     Active Substance: VINCRISTINE
     Indication: Diffuse large B-cell lymphoma
     Dosage: UNK, 2ND CYCLE
     Route: 065
     Dates: start: 20210105, end: 20210106
  58. VINCRISTINE [Suspect]
     Active Substance: VINCRISTINE
     Dosage: UNK, 4TH  CYCLE
     Route: 065
     Dates: start: 20210219, end: 20210220
  59. VINCRISTINE [Suspect]
     Active Substance: VINCRISTINE
     Dosage: UNK, 5TH CYCLE
     Route: 065
     Dates: start: 20210315, end: 20210316
  60. VINCRISTINE [Suspect]
     Active Substance: VINCRISTINE
     Dosage: UNK, 7TH CYCLE
     Route: 065
     Dates: start: 20210429
  61. VINCRISTINE [Suspect]
     Active Substance: VINCRISTINE
     Dosage: UNK, 1ST CYCLE
     Route: 065
     Dates: start: 20201215, end: 20201218
  62. VINCRISTINE [Suspect]
     Active Substance: VINCRISTINE
     Dosage: UNK, 8TH CYCLE
     Route: 065
     Dates: start: 20210520, end: 20210521
  63. VINCRISTINE [Suspect]
     Active Substance: VINCRISTINE
     Dosage: UNK, 3RD CYCLE
     Route: 065
     Dates: start: 20210129, end: 20210130
  64. VINCRISTINE [Suspect]
     Active Substance: VINCRISTINE
     Dosage: UNK, 6TH CYCLE
     Route: 065
     Dates: start: 20210406, end: 20210407

REACTIONS (4)
  - Death [Fatal]
  - Immune effector cell-associated neurotoxicity syndrome [Recovered/Resolved]
  - Diffuse large B-cell lymphoma recurrent [Unknown]
  - Thrombocytopenia [Unknown]

NARRATIVE: CASE EVENT DATE: 20230408
